FAERS Safety Report 8557187-9 (Version None)
Quarter: 2012Q3

REPORT INFORMATION
  Report Type: 
  Country: None (occurrence: None)
  Receive Date: 20120801
  Receipt Date: 20120725
  Transmission Date: 20120928
  Serious: Yes (Other)
  Sender: FDA-Public Use
  Company Number: PHEH2012US014626

PATIENT
  Sex: Female

DRUGS (2)
  1. LAMICTAL [Concomitant]
     Dosage: UNK UKN, UNK
  2. FANAPT [Suspect]
     Dosage: 10 MG, BID
     Route: 048

REACTIONS (7)
  - DIABETES MELLITUS [None]
  - COGNITIVE DISORDER [None]
  - LIPIDS INCREASED [None]
  - AMNESIA [None]
  - BALANCE DISORDER [None]
  - VOMITING [None]
  - HEART RATE DECREASED [None]
